FAERS Safety Report 10691485 (Version 3)
Quarter: 2015Q1

REPORT INFORMATION
  Report Type: Other
  Country: FR (occurrence: FR)
  Receive Date: 20150105
  Receipt Date: 20150123
  Transmission Date: 20150720
  Serious: Yes (Life-Threatening)
  Sender: FDA-Public Use
  Company Number: FR-ASTELLAS-2014US021563

PATIENT
  Age: 64 Year
  Sex: Female

DRUGS (11)
  1. CELLCEPT [Suspect]
     Active Substance: MYCOPHENOLATE MOFETIL\MYCOPHENOLATE MOFETIL HYDROCHLORIDE
     Indication: TRANSPLANT REJECTION
     Dosage: 150 MG, ONCE DAILY (LONG TERM TREATMENT) (75 MG TABLETS DAILY)
     Route: 048
     Dates: end: 20141016
  2. LEVOTHYROX [Concomitant]
     Active Substance: LEVOTHYROXINE
     Indication: PRODUCT USED FOR UNKNOWN INDICATION
     Dosage: 1 DF, ONCE DAILY (LONG TERM TREATMENT)
     Route: 048
  3. PROGRAF [Suspect]
     Active Substance: TACROLIMUS\TACROLIMUS ANHYDROUS
     Dosage: 2 DF, TWICE DAILY (1 MG 2 TABLETS IN THE MORNING AND 2 TABLETS IN THE EVENING)
     Route: 065
     Dates: start: 20141016
  4. SOLUPRED                           /00016201/ [Concomitant]
     Active Substance: PREDNISOLONE
     Indication: TRANSPLANT REJECTION
     Dosage: 1 DF, ONCE DAILY (LONG TERM TREATMENT) ( 5 MG 1 TABLET DAILY)
     Route: 048
  5. INSULIN [Concomitant]
     Active Substance: INSULIN NOS
     Indication: PRODUCT USED FOR UNKNOWN INDICATION
     Dosage: UNK UNK, UNKNOWN FREQ. (DRUG: INSULIN PUMP)
     Route: 065
  6. EUPANTOL [Concomitant]
     Active Substance: PANTOPRAZOLE SODIUM
     Indication: PRODUCT USED FOR UNKNOWN INDICATION
     Dosage: 1 DF (20 MG TABLET), ONCE DAILY (LONG TERM TREATMENT)
     Route: 065
  7. PROGRAF [Suspect]
     Active Substance: TACROLIMUS\TACROLIMUS ANHYDROUS
     Indication: TRANSPLANT REJECTION
     Dosage: 4.5 MG, ONCE DAILY (2.5 MG IN THE MORNING AND 2 MG IN THE EVENING) (LONG TERM TREATMENT)
     Route: 065
  8. SEROPLEX [Concomitant]
     Active Substance: ESCITALOPRAM OXALATE
     Indication: PRODUCT USED FOR UNKNOWN INDICATION
     Dosage: 1 DF, ONCE DAILY (LONG TERM TREATMENT)
     Route: 048
  9. LYRICA [Concomitant]
     Active Substance: PREGABALIN
     Indication: PRODUCT USED FOR UNKNOWN INDICATION
     Dosage: 1 DF, ONCE DAILY (LONG TERM TREATMENT)
     Route: 048
  10. LAMICTAL [Suspect]
     Active Substance: LAMOTRIGINE
     Indication: PARTIAL SEIZURES
     Dosage: 1 DF (25 MG ONE TABLET), ONCE DAILY
     Route: 048
     Dates: start: 20140922, end: 20141016
  11. AUGMENTIN [Suspect]
     Active Substance: AMOXICILLIN\CLAVULANATE POTASSIUM
     Indication: INFECTION
     Dosage: UNK, UNKNOWN FREQ.
     Route: 065
     Dates: start: 20141004, end: 20141009

REACTIONS (2)
  - Bicytopenia [Recovered/Resolved]
  - Product use issue [Unknown]

NARRATIVE: CASE EVENT DATE: 20141005
